FAERS Safety Report 4908523-3 (Version None)
Quarter: 2006Q1

REPORT INFORMATION
  Report Type: 
  Country: None (occurrence: None)
  Receive Date: 20060210
  Receipt Date: 20050816
  Transmission Date: 20060701
  Serious: No
  Sender: FDA-Public Use
  Company Number: US-GLAXOSMITHKLINE-A0570453A

PATIENT
  Age: 37 Year
  Sex: Male

DRUGS (3)
  1. PAXIL CR [Suspect]
     Indication: OBSESSIVE-COMPULSIVE DISORDER
     Route: 048
     Dates: start: 20040101
  2. BENICAR [Concomitant]
  3. ACIPHEX [Concomitant]

REACTIONS (1)
  - DRUG INEFFECTIVE [None]
